FAERS Safety Report 8778878 (Version 2)
Quarter: 2012Q4

REPORT INFORMATION
  Report Type: 
  Country: US (occurrence: US)
  Receive Date: 20120912
  Receipt Date: 20121004
  Transmission Date: 20130627
  Serious: No
  Sender: FDA-Public Use
  Company Number: US-BAYER-2012-093811

PATIENT
  Sex: Female
  Weight: 60.77 kg

DRUGS (1)
  1. CLIMARA PRO [Suspect]
     Indication: POSTMENOPAUSE
     Dosage: UNK
     Route: 062
     Dates: start: 2007

REACTIONS (3)
  - Product adhesion issue [None]
  - Metrorrhagia [Recovered/Resolved]
  - Biopsy [None]
